FAERS Safety Report 23816660 (Version 1)
Quarter: 2024Q2

REPORT INFORMATION
  Report Type: Spontaneous
  Country: US (occurrence: US)
  Receive Date: 20240504
  Receipt Date: 20240504
  Transmission Date: 20240715
  Serious: No
  Sender: FDA-Public Use
  Company Number: US-Accord-407006

PATIENT
  Sex: Male
  Weight: 81.65 kg

DRUGS (1)
  1. FLUOROURACIL [Suspect]
     Active Substance: FLUOROURACIL
     Indication: Precancerous condition
     Dosage: APPLY CREAM TO LOWER LIP TWICE DAILY, 5 %
     Dates: start: 20240130

REACTIONS (2)
  - Product administration error [Unknown]
  - Off label use [Unknown]
